FAERS Safety Report 24576599 (Version 1)
Quarter: 2024Q4

REPORT INFORMATION
  Report Type: Spontaneous
  Country: RO (occurrence: RO)
  Receive Date: 20241104
  Receipt Date: 20241104
  Transmission Date: 20250114
  Serious: Yes (Hospitalization, Other)
  Sender: BRISTOL-MYERS SQUIBB COMPANY
  Company Number: RO-BRISTOL-MYERS SQUIBB COMPANY-2024-169756

PATIENT
  Age: 42 Year
  Sex: Male

DRUGS (4)
  1. OPDIVO [Suspect]
     Active Substance: NIVOLUMAB
     Indication: Malignant melanoma
     Dosage: DOSE : 4 CYCLES;     FREQ : UNAVAILABLE
     Dates: start: 20231220, end: 202402
  2. OPDIVO [Suspect]
     Active Substance: NIVOLUMAB
  3. YERVOY [Suspect]
     Active Substance: IPILIMUMAB
     Indication: Malignant melanoma
     Dates: start: 20231220, end: 202402
  4. DENOSUMAB [Suspect]
     Active Substance: DENOSUMAB
     Indication: Product used for unknown indication
     Dosage: 120MG SC AT 28 DAYS
     Route: 058
     Dates: start: 20231220

REACTIONS (5)
  - Dermatitis [Recovered/Resolved]
  - Hyperthyroidism [Unknown]
  - Hepatic cytolysis [Recovered/Resolved]
  - Cholestasis [Recovered/Resolved]
  - Psychomotor hyperactivity [Unknown]

NARRATIVE: CASE EVENT DATE: 20240201
